FAERS Safety Report 15011622 (Version 1)
Quarter: 2018Q2

REPORT INFORMATION
  Report Type: Spontaneous
  Country: US (occurrence: US)
  Receive Date: 20180529
  Receipt Date: 20180529
  Transmission Date: 20180711
  Serious: Yes (Other)
  Sender: FDA-Public Use
  Company Number: None

PATIENT
  Age: 25 Year
  Sex: Female
  Weight: 69.75 kg

DRUGS (2)
  1. INVANZ [Concomitant]
     Active Substance: ERTAPENEM SODIUM
     Dates: start: 20180516, end: 20180523
  2. DAPTOMYCIN. [Suspect]
     Active Substance: DAPTOMYCIN
     Indication: WOUND INFECTION
     Route: 041
     Dates: start: 20180516, end: 20180523

REACTIONS (4)
  - Tremor [None]
  - Headache [None]
  - Rash [None]
  - Pruritus [None]

NARRATIVE: CASE EVENT DATE: 20180516
